FAERS Safety Report 7729552-0 (Version None)
Quarter: 2011Q3

REPORT INFORMATION
  Report Type: 
  Country: None (occurrence: None)
  Receive Date: 20110906
  Receipt Date: 20110830
  Transmission Date: 20111222
  Serious: Yes (Other)
  Sender: FDA-Public Use
  Company Number: US-JNJFOC-20110900273

PATIENT
  Sex: Female

DRUGS (3)
  1. CELEBREX [Concomitant]
  2. REMICADE [Suspect]
     Indication: RHEUMATOID ARTHRITIS
     Route: 042
  3. TYLENOL-500 [Concomitant]
     Indication: PAIN

REACTIONS (1)
  - UPPER LIMB FRACTURE [None]
